FAERS Safety Report 6862041-4 (Version None)
Quarter: 2010Q3

REPORT INFORMATION
  Report Type: 
  Country: None (occurrence: None)
  Receive Date: 20100721
  Receipt Date: 20100707
  Transmission Date: 20110219
  Serious: Yes (Other)
  Sender: FDA-Public Use
  Company Number: GB-RANBAXY-2010RR-35691

PATIENT
  Age: 50 Year
  Sex: Male

DRUGS (12)
  1. PREDNISOLONE [Suspect]
     Indication: PLASMABLASTIC LYMPHOMA
  2. VINCRISTINE SULFATE [Suspect]
     Indication: PLASMABLASTIC LYMPHOMA
  3. DOXORUBICIN HCL [Suspect]
     Indication: PLASMABLASTIC LYMPHOMA
  4. CYCLOPHOSPHAMIDE [Suspect]
     Indication: PLASMABLASTIC LYMPHOMA
  5. FLUCONAZOLE [Suspect]
     Indication: PROPHYLAXIS
     Dosage: 50 MG, QD
  6. ACYCLOVIR [Suspect]
     Indication: PROPHYLAXIS
     Dosage: 400 MG, BID
  7. AZITHROMYCIN [Suspect]
     Indication: PROPHYLAXIS
     Dosage: 1250 MG, 1/WEEK
  8. COTRIM [Concomitant]
     Indication: PROPHYLAXIS
     Dosage: 960 MG, QD
  9. TENOFOVIR DISOPROXIL FUMARATE [Suspect]
     Indication: HIV INFECTION
  10. EMTRICITABINE [Suspect]
     Indication: HIV INFECTION
  11. DARUNAVIR [Suspect]
     Indication: HIV INFECTION
  12. RITONAVIR [Suspect]
     Indication: HIV INFECTION

REACTIONS (2)
  - CYTOMEGALOVIRUS INFECTION [None]
  - FEBRILE NEUTROPENIA [None]
